FAERS Safety Report 19066757 (Version 1)
Quarter: 2021Q1

REPORT INFORMATION
  Report Type: Other
  Country: CA (occurrence: CA)
  Receive Date: 20210329
  Receipt Date: 20210329
  Transmission Date: 20210420
  Serious: Yes (Other)
  Sender: FDA-Public Use
  Company Number: CA-CELLTRION INC.-2021CA003969

PATIENT

DRUGS (17)
  1. APO?PREDNISONE [Suspect]
     Active Substance: PREDNISONE
     Indication: NEPHROPATHY
     Route: 065
  2. BUSULFAN. [Suspect]
     Active Substance: BUSULFAN
     Indication: CHEMOTHERAPY
     Dosage: 3.2 MG/M2
     Route: 065
  3. CYCLOPHOSPHAMIDE. [Suspect]
     Active Substance: CYCLOPHOSPHAMIDE
     Indication: CHEMOTHERAPY
     Dosage: UNK
     Route: 065
  4. BENDAMUSTINE HYDROCHLORIDE. [Suspect]
     Active Substance: BENDAMUSTINE HYDROCHLORIDE
     Indication: CHEMOTHERAPY
     Route: 042
  5. GANCICLOVIR. [Suspect]
     Active Substance: GANCICLOVIR
     Indication: CHEMOTHERAPY
     Route: 065
  6. CICLOSPORIN [Suspect]
     Active Substance: CYCLOSPORINE
     Indication: NEPHROPATHY
     Dosage: 2.5 MG/KG 1 EVERY 12 HRS
     Route: 065
  7. LEFLUNOMIDE. [Suspect]
     Active Substance: LEFLUNOMIDE
     Dosage: 100 MILLIGRAM 1 EVERY 1 DAYS
     Route: 048
  8. OBINUTUZUMAB. [Suspect]
     Active Substance: OBINUTUZUMAB
     Indication: CHEMOTHERAPY
     Route: 042
  9. VINCRISTINE SULFATE. [Suspect]
     Active Substance: VINCRISTINE SULFATE
     Indication: CHEMOTHERAPY
     Route: 065
  10. ALEMTUZUMAB [Suspect]
     Active Substance: ALEMTUZUMAB
     Indication: CHEMOTHERAPY
     Dosage: 30 MILLIGRAM
     Route: 065
  11. DOXORUBICIN HYDROCHLORIDE. [Suspect]
     Active Substance: DOXORUBICIN HYDROCHLORIDE
     Indication: CHEMOTHERAPY
     Route: 042
  12. LEFLUNOMIDE. [Suspect]
     Active Substance: LEFLUNOMIDE
     Indication: NEPHROPATHY
     Dosage: UNK
     Route: 065
  13. CICLOSPORIN [Suspect]
     Active Substance: CYCLOSPORINE
     Dosage: UNK
     Route: 065
  14. CYCLOPHOSPHAMIDE. [Suspect]
     Active Substance: CYCLOPHOSPHAMIDE
     Dosage: 60 MG/KG
     Route: 065
  15. RITUXIMAB (UNKNOWN) [Suspect]
     Active Substance: RITUXIMAB
     Indication: CHEMOTHERAPY
     Route: 065
  16. LEFLUNOMIDE. [Suspect]
     Active Substance: LEFLUNOMIDE
     Dosage: 40 MILLIGRAM 1 EVERY 1 DAYS
     Route: 048
  17. MYCOPHENOLATE MOFETIL. [Suspect]
     Active Substance: MYCOPHENOLATE MOFETIL
     Indication: IMMUNOSUPPRESSION
     Route: 065

REACTIONS (1)
  - End stage renal disease [Unknown]
